FAERS Safety Report 4268903-9 (Version None)
Quarter: 2004Q1

REPORT INFORMATION
  Report Type: 
  Country: None (occurrence: None)
  Receive Date: 20040112
  Receipt Date: 20040112
  Transmission Date: 20041129
  Serious: Yes (Other)
  Sender: FDA-Public Use
  Company Number: None

PATIENT
  Sex: Male
  Weight: 113.3993 kg

DRUGS (1)
  1. ZOCOR [Suspect]
     Indication: BLOOD CHOLESTEROL INCREASED
     Dosage: 1 /DAY ORAL
     Route: 048
     Dates: start: 20000310, end: 20030723

REACTIONS (3)
  - ASTHENIA [None]
  - MYALGIA [None]
  - UNEVALUABLE EVENT [None]
